FAERS Safety Report 6931922-5 (Version None)
Quarter: 2010Q3

REPORT INFORMATION
  Report Type: 
  Country: None (occurrence: None)
  Receive Date: 20100812
  Receipt Date: 20090706
  Transmission Date: 20110219
  Serious: No
  Sender: FDA-Public Use
  Company Number: 2009-00336

PATIENT

DRUGS (1)
  1. ALL ZICAM PRODUCTS [Suspect]
     Dosage: QD X 1 DAY; OVER 3 YEARS AGO

REACTIONS (2)
  - AGEUSIA [None]
  - ANOSMIA [None]
